FAERS Safety Report 13304517 (Version 2)
Quarter: 2017Q2

REPORT INFORMATION
  Report Type: Report from Study
  Country: None (occurrence: DO)
  Receive Date: 20170308
  Receipt Date: 20170411
  Transmission Date: 20170830
  Serious: Yes (Other)
  Sender: FDA-Public Use
  Company Number: DO-ABBVIE-17K-279-1895007-00

PATIENT
  Age: 44 Year
  Sex: Female

DRUGS (1)
  1. HUMIRA [Suspect]
     Active Substance: ADALIMUMAB
     Indication: RHEUMATOID ARTHRITIS
     Route: 058
     Dates: start: 20150715

REACTIONS (6)
  - Joint swelling [Recovered/Resolved]
  - Dermal cyst [Recovering/Resolving]
  - Hypersensitivity [Recovered/Resolved]
  - Pain in extremity [Recovering/Resolving]
  - Limb mass [Recovering/Resolving]
  - Peripheral swelling [Recovering/Resolving]

NARRATIVE: CASE EVENT DATE: 201608
